FAERS Safety Report 4413079-8 (Version None)
Quarter: 2004Q3

REPORT INFORMATION
  Report Type: 
  Country: None (occurrence: None)
  Receive Date: 20040802
  Receipt Date: 20040802
  Transmission Date: 20050211
  Serious: Yes (Other)
  Sender: FDA-Public Use
  Company Number: None

PATIENT
  Age: 54 Year
  Sex: Male
  Weight: 80 kg

DRUGS (2)
  1. METOCLOPRAMIDE [Suspect]
     Indication: GASTROINTESTINAL HYPERMOTILITY
     Dosage: 10 MG BID ORAL
     Route: 048
     Dates: start: 20040601, end: 20040731
  2. METOCLOPRAMIDE [Suspect]
     Indication: PROPHYLAXIS
     Dosage: 10 MG BID ORAL
     Route: 048
     Dates: start: 20040601, end: 20040731

REACTIONS (1)
  - PYREXIA [None]
